FAERS Safety Report 12016068 (Version 1)
Quarter: 2016Q1

REPORT INFORMATION
  Report Type: Report from Study
  Country: US (occurrence: US)
  Receive Date: 20160205
  Receipt Date: 20160205
  Transmission Date: 20160526
  Serious: No
  Sender: FDA-Public Use
  Company Number: US-AMGEN-USASL2015110250

PATIENT
  Age: 73 Year
  Sex: Male

DRUGS (3)
  1. NEULASTA [Suspect]
     Active Substance: PEGFILGRASTIM
     Indication: COLON CANCER
  2. NEULASTA [Suspect]
     Active Substance: PEGFILGRASTIM
     Indication: CHOLANGIOCARCINOMA
  3. NEULASTA [Suspect]
     Active Substance: PEGFILGRASTIM
     Indication: METASTASES TO LIVER
     Dosage: UNK UNK, UNK
     Route: 065

REACTIONS (1)
  - Off label use [Unknown]
